FAERS Safety Report 16763173 (Version 6)
Quarter: 2021Q3

REPORT INFORMATION
  Report Type: Spontaneous
  Country: IT (occurrence: IT)
  Receive Date: 20190902
  Receipt Date: 20210909
  Transmission Date: 20211014
  Serious: Yes (Death, Hospitalization)
  Sender: FDA-Public Use
  Company Number: IT-BIOGEN-2019BI00779848

PATIENT
  Age: 5 Year
  Sex: Female

DRUGS (2)
  1. SPINRAZA [Suspect]
     Active Substance: NUSINERSEN
     Route: 037
     Dates: start: 20170616, end: 201907
  2. SPINRAZA [Suspect]
     Active Substance: NUSINERSEN
     Indication: SPINAL MUSCULAR ATROPHY
     Route: 037
     Dates: start: 20170616

REACTIONS (7)
  - Intestinal infarction [Fatal]
  - Multiple organ dysfunction syndrome [Fatal]
  - Hyperpyrexia [Fatal]
  - Septic shock [Fatal]
  - Cardio-respiratory arrest [Fatal]
  - Loss of consciousness [Fatal]
  - Sepsis [Fatal]

NARRATIVE: CASE EVENT DATE: 20190729
